FAERS Safety Report 25714855 (Version 1)
Quarter: 2025Q3

REPORT INFORMATION
  Report Type: Spontaneous
  Country: US (occurrence: US)
  Receive Date: 20250822
  Receipt Date: 20250822
  Transmission Date: 20251020
  Serious: No
  Sender: ROCHE
  Company Number: US-ROCHE-10000365631

PATIENT
  Age: 25 Year
  Sex: Female

DRUGS (6)
  1. XOLAIR [Suspect]
     Active Substance: OMALIZUMAB
     Indication: Chronic spontaneous urticaria
     Dosage: STRENGTH: 300MG/2ML
     Route: 065
     Dates: start: 20240715
  2. CETIRIZINE [Concomitant]
     Active Substance: CETIRIZINE HYDROCHLORIDE
     Indication: Chronic spontaneous urticaria
     Dates: end: 20240325
  3. LEVOCETIRIZINE [Concomitant]
     Active Substance: LEVOCETIRIZINE
     Indication: Chronic spontaneous urticaria
     Dates: start: 20240325
  4. DOXEPIN [Concomitant]
     Active Substance: DOXEPIN
     Indication: Chronic spontaneous urticaria
     Dates: start: 20240429
  5. FAMOTIDINE [Concomitant]
     Active Substance: FAMOTIDINE
     Indication: Chronic spontaneous urticaria
     Dates: start: 20240429
  6. HYDROXYCHLOROQUINE [Concomitant]
     Active Substance: HYDROXYCHLOROQUINE
     Indication: Chronic spontaneous urticaria
     Dates: start: 20240429, end: 20240619

REACTIONS (2)
  - Off label use [Unknown]
  - No adverse event [Unknown]

NARRATIVE: CASE EVENT DATE: 20240715
